FAERS Safety Report 24828573 (Version 1)
Quarter: 2025Q1

REPORT INFORMATION
  Report Type: Spontaneous
  Country: JP (occurrence: JP)
  Receive Date: 20250110
  Receipt Date: 20250110
  Transmission Date: 20250409
  Serious: Yes (Hospitalization, Other)
  Sender: ORGANON
  Company Number: JP-ORGANON-O2501JPN000486

PATIENT
  Age: 8 Decade
  Sex: Female

DRUGS (4)
  1. REMERON [Suspect]
     Active Substance: MIRTAZAPINE
     Indication: Depression
     Route: 048
  2. INDAPAMIDE [Suspect]
     Active Substance: INDAPAMIDE
     Indication: Hypertension
     Route: 048
  3. LOSARTAN [Concomitant]
     Active Substance: LOSARTAN
     Indication: Hypertension
     Route: 048
  4. AMLODIPINE BESYLATE [Concomitant]
     Active Substance: AMLODIPINE BESYLATE
     Indication: Hypertension
     Route: 048

REACTIONS (2)
  - Inappropriate antidiuretic hormone secretion [Unknown]
  - Hyponatraemia [Recovering/Resolving]
